FAERS Safety Report 15454387 (Version 1)
Quarter: 2018Q4

REPORT INFORMATION
  Report Type: Spontaneous
  Country: FR (occurrence: FR)
  Receive Date: 20181002
  Receipt Date: 20181002
  Transmission Date: 20190204
  Serious: Yes (Hospitalization)
  Sender: FDA-Public Use
  Company Number: FR-ASTRAZENECA-2018SF27763

PATIENT
  Age: 50 Day
  Sex: Female
  Weight: 5 kg

DRUGS (1)
  1. INEXIUM (ESOMEPRAZOLE MAGNESIUM) [Suspect]
     Active Substance: ESOMEPRAZOLE MAGNESIUM
     Indication: STRIDOR
     Route: 048
     Dates: start: 20180919

REACTIONS (6)
  - Off label use [Unknown]
  - Mood swings [Unknown]
  - Product use issue [Unknown]
  - Poor feeding infant [Unknown]
  - Weight decreased [Unknown]
  - Somnolence [Unknown]

NARRATIVE: CASE EVENT DATE: 20180919
